FAERS Safety Report 4872564-5 (Version None)
Quarter: 2006Q1

REPORT INFORMATION
  Report Type: 
  Country: None (occurrence: None)
  Receive Date: 20060105
  Receipt Date: 20051021
  Transmission Date: 20060701
  Serious: Yes (Other)
  Sender: FDA-Public Use
  Company Number: PT-BOEHRINGER INGELHEIM PHARMACEUTICALS, INC.-2005-DE-04427PO

PATIENT
  Sex: Male
  Weight: 50 kg

DRUGS (11)
  1. ATROVENT [Suspect]
     Indication: CHRONIC OBSTRUCTIVE PULMONARY DISEASE
     Dosage: 0,4 MG/ML
     Route: 055
     Dates: start: 20040101, end: 20050915
  2. FENITOINE, SODIUM [Suspect]
     Indication: EPILEPSY
     Route: 048
  3. DIPHENILHIDANTOINE [Concomitant]
     Indication: EPILEPSY
  4. ACETYLCYSTEINE [Concomitant]
  5. BUDENOSIDE [Concomitant]
     Route: 055
  6. SALBUTAMOL, SULPHATE [Concomitant]
  7. MULTIVITAMINS+MINERAL SALTS [Concomitant]
  8. OMEPRAZOLE [Concomitant]
  9. BROMEXINE, CLORIDATE [Concomitant]
     Indication: RESPIRATORY TRACT INFECTION
     Dates: start: 20050727, end: 20050803
  10. AMOXACILLINE TRIHYDRATED [Concomitant]
     Indication: RESPIRATORY TRACT INFECTION
     Route: 048
     Dates: start: 20050727, end: 20050803
  11. PROCATEROL CLORIDRATE [Concomitant]
     Route: 055

REACTIONS (14)
  - CEREBROVASCULAR ACCIDENT [None]
  - CHRONIC OBSTRUCTIVE PULMONARY DISEASE [None]
  - COGNITIVE DETERIORATION [None]
  - CONFUSIONAL STATE [None]
  - CONVULSION [None]
  - COUGH [None]
  - DELIRIUM [None]
  - DEMENTIA [None]
  - DYSPEPSIA [None]
  - DYSPHORIA [None]
  - HYPERCAPNIA [None]
  - INSOMNIA [None]
  - RESPIRATORY FAILURE [None]
  - RESPIRATORY TRACT INFECTION [None]
